FAERS Safety Report 18690916 (Version 1)
Quarter: 2021Q1

REPORT INFORMATION
  Report Type: Spontaneous
  Country: NL (occurrence: NL)
  Receive Date: 20210101
  Receipt Date: 20210101
  Transmission Date: 20210419
  Serious: Yes (Other)
  Sender: FDA-Public Use
  Company Number: NL-ACCORD-212862

PATIENT
  Age: 41 Year
  Sex: Male
  Weight: 80 kg

DRUGS (3)
  1. GLENTEK [Concomitant]
     Dosage: STRENGTH: 50 MG, COATED TABLET, 50 MG (MILLIGRAMS)
  2. AMITRIPTYLINE [Suspect]
     Active Substance: AMITRIPTYLINE
     Indication: SALIVARY HYPERSECRETION
     Dosage: STRENGTH: 10MG, 1X1
     Dates: start: 20201201, end: 20201206
  3. DEXTROMETHORPHAN/QUINIDINE [Concomitant]
     Active Substance: DEXTROMETHORPHAN HYDROBROMIDE\QUINIDINE SULFATE
     Dosage: STRENGTH: 20/10 MG (MILLIGRAM)

REACTIONS (1)
  - Atrial fibrillation [Recovered/Resolved]

NARRATIVE: CASE EVENT DATE: 20201202
